FAERS Safety Report 12987128 (Version 1)
Quarter: 2016Q4

REPORT INFORMATION
  Report Type: Spontaneous
  Country: US (occurrence: US)
  Receive Date: 20161129
  Receipt Date: 20161129
  Transmission Date: 20170207
  Serious: Yes (Death)
  Sender: FDA-Public Use
  Company Number: None

PATIENT
  Age: 87 Year
  Sex: Male

DRUGS (6)
  1. ATORVASTATIN [Concomitant]
     Active Substance: ATORVASTATIN
  2. PREDNISONE. [Concomitant]
     Active Substance: PREDNISONE
  3. MIDODRINE [Concomitant]
     Active Substance: MIDODRINE
  4. CALCITRIOL. [Concomitant]
     Active Substance: CALCITRIOL
  5. ZYTIGA [Suspect]
     Active Substance: ABIRATERONE ACETATE
     Indication: PROSTATE CANCER
     Dosage: 1000 MG (4 TABS) DAILY PO
     Route: 048
     Dates: start: 20140128, end: 20161116
  6. HYDROCO/APAP [Concomitant]
     Active Substance: ACETAMINOPHEN\HYDROCODONE

REACTIONS (1)
  - Death [None]

NARRATIVE: CASE EVENT DATE: 20161116
